FAERS Safety Report 23598382 (Version 2)
Quarter: 2024Q1

REPORT INFORMATION
  Report Type: Report from Study
  Country: CH (occurrence: CH)
  Receive Date: 20240305
  Receipt Date: 20240308
  Transmission Date: 20240409
  Serious: Yes (Death, Other)
  Sender: FDA-Public Use
  Company Number: CH-ABBVIE-5494127

PATIENT
  Sex: Male

DRUGS (7)
  1. CARBIDOPA\LEVODOPA [Suspect]
     Active Substance: CARBIDOPA\LEVODOPA
     Indication: Parkinson^s disease
     Dosage: MD: 7.0 ML, CRD: 4.7 ML/H, ED: 1.0 ML, CRN: 2.5ML/H?24H THERAPY?LAST ADMIN DATE: 2024
     Route: 050
     Dates: start: 20240118
  2. CARBIDOPA\LEVODOPA [Suspect]
     Active Substance: CARBIDOPA\LEVODOPA
     Dosage: MD: 8.0 ML, CRD: 4.2 ML/H, ED: 1.0 ML, CRN: 2.8ML/H?24H THERAPY
     Route: 050
     Dates: start: 20231024, end: 20231109
  3. CARBIDOPA\LEVODOPA [Suspect]
     Active Substance: CARBIDOPA\LEVODOPA
     Dosage: MD: 8.0 ML, CRD: 4.4 ML/H, ED: 1.5 ML, CRN: 2.8ML/H?24H THERAPY
     Route: 050
     Dates: start: 20231109, end: 20240118
  4. CARBIDOPA\LEVODOPA [Suspect]
     Active Substance: CARBIDOPA\LEVODOPA
     Dosage: MD: 7.0 ML, CRD: 3.7 ML/H, ED: 1.0 ML, CRN: 2.5ML/H?24H THERAPY
     Route: 050
     Dates: start: 20231020, end: 20231024
  5. CARBIDOPA\LEVODOPA [Suspect]
     Active Substance: CARBIDOPA\LEVODOPA
     Dosage: MD: 7.0 ML, CRD: 4.7 ML/H, ED: 1.0 ML, CRN: 2.5ML/H?LAST ADMIN DATE- OCT 2023
     Route: 050
     Dates: start: 20231017
  6. CARBIDOPA\LEVODOPA [Suspect]
     Active Substance: CARBIDOPA\LEVODOPA
     Dosage: MD: 8.0 ML, CRD: 5.2 ML/H, ED: 1.50 ML, CRN: 3.3 ML/H
     Route: 050
     Dates: start: 20240228, end: 20240303
  7. CARBIDOPA\LEVODOPA [Suspect]
     Active Substance: CARBIDOPA\LEVODOPA
     Dosage: CRD 4.9ML/H, CRN 2.9ML/H, INCREASED THE CRD,?FIRST ADMIN DATE: 2024, 24H THERAPY
     Route: 050

REACTIONS (16)
  - Death [Fatal]
  - Akinesia [Not Recovered/Not Resolved]
  - Hallucination [Recovering/Resolving]
  - Dysphagia [Recovering/Resolving]
  - On and off phenomenon [Recovering/Resolving]
  - Restlessness [Not Recovered/Not Resolved]
  - Weight increased [Not Recovered/Not Resolved]
  - Cough [Unknown]
  - Influenza [Not Recovered/Not Resolved]
  - Parkinson^s disease [Not Recovered/Not Resolved]
  - General physical health deterioration [Not Recovered/Not Resolved]
  - Palliative care [Not Recovered/Not Resolved]
  - Loss of consciousness [Recovered/Resolved]
  - Dysphagia [Not Recovered/Not Resolved]
  - Enteral nutrition [Recovered/Resolved]
  - Device issue [Unknown]

NARRATIVE: CASE EVENT DATE: 20230101
